FAERS Safety Report 5898348-7 (Version None)
Quarter: 2008Q3

REPORT INFORMATION
  Report Type: 
  Country: None (occurrence: None)
  Receive Date: 20080925
  Receipt Date: 20070926
  Transmission Date: 20090109
  Serious: No
  Sender: FDA-Public Use
  Company Number: A0684360A

PATIENT
  Age: 30 Year
  Sex: Female

DRUGS (2)
  1. WELLBUTRIN XL [Suspect]
     Indication: DEPRESSION
     Dosage: 300MG PER DAY
     Route: 048
     Dates: start: 20070301, end: 20070926
  2. NO CONCURRENT MEDICATION [Concomitant]

REACTIONS (4)
  - AFFECT LABILITY [None]
  - DRUG INEFFECTIVE [None]
  - FATIGUE [None]
  - FEELING GUILTY [None]
